FAERS Safety Report 7768770-2 (Version None)
Quarter: 2011Q3

REPORT INFORMATION
  Report Type: 
  Country: None (occurrence: None)
  Receive Date: 20110922
  Receipt Date: 20101004
  Transmission Date: 20111222
  Serious: No
  Sender: FDA-Public Use
  Company Number: US-ASTRAZENECA-2010SE46648

PATIENT
  Age: 535 Month
  Sex: Male
  Weight: 77.1 kg

DRUGS (9)
  1. SEROQUEL XR [Suspect]
     Route: 048
     Dates: start: 20100901
  2. CITALOPRAM HYDROBROMIDE [Concomitant]
  3. LISINOPRIL [Concomitant]
     Indication: HYPERTENSION
  4. PHENYTOIN [Concomitant]
     Indication: CONVULSION
  5. AMPHETAMINE AND DEXTROAMPHETAMINE SALTS [Concomitant]
     Indication: POOR QUALITY SLEEP
  6. SEROQUEL XR [Suspect]
     Route: 048
     Dates: end: 20100901
  7. HALOPERIDOL [Concomitant]
  8. DIAZEPAM [Concomitant]
  9. PRAVASTATIN [Concomitant]
     Indication: BLOOD CHOLESTEROL INCREASED

REACTIONS (5)
  - HYPERTENSION [None]
  - HEADACHE [None]
  - DRUG DOSE OMISSION [None]
  - BLOOD CHOLESTEROL INCREASED [None]
  - POOR QUALITY SLEEP [None]
